FAERS Safety Report 24588118 (Version 1)
Quarter: 2024Q4

REPORT INFORMATION
  Report Type: Report from Study
  Country: US (occurrence: US)
  Receive Date: 20241107
  Receipt Date: 20241107
  Transmission Date: 20250115
  Serious: Yes (Hospitalization)
  Sender: PARATEK PHARMACEUTICALS
  Company Number: US-PARATEK PHARMACEUTICALS, INC.-2024PTK00932

PATIENT
  Age: 65 Year
  Sex: Male

DRUGS (6)
  1. NUZYRA [Suspect]
     Active Substance: OMADACYCLINE
     Dosage: 300 MG (2 TABLETS), 1X/DAY
     Route: 048
     Dates: start: 20240612
  2. OFEV [Concomitant]
     Active Substance: NINTEDANIB
  3. TAMSULOSIN [Concomitant]
     Active Substance: TAMSULOSIN
  4. ALLOPURINOL [Concomitant]
     Active Substance: ALLOPURINOL
  5. PROMETHAZINE [Concomitant]
     Active Substance: PROMETHAZINE HYDROCHLORIDE
  6. AZITHROMYCIN [Concomitant]
     Active Substance: AZITHROMYCIN

REACTIONS (4)
  - Hospitalisation [Not Recovered/Not Resolved]
  - Retching [Unknown]
  - Diarrhoea [Unknown]
  - Nausea [Unknown]

NARRATIVE: CASE EVENT DATE: 20240101
